FAERS Safety Report 7608514-8 (Version None)
Quarter: 2011Q3

REPORT INFORMATION
  Report Type: 
  Country: None (occurrence: None)
  Receive Date: 20110714
  Receipt Date: 20110711
  Transmission Date: 20111222
  Serious: Yes (Death)
  Sender: FDA-Public Use
  Company Number: FR-BRISTOL-MYERS SQUIBB COMPANY-15853377

PATIENT
  Age: 35 Year
  Sex: Male

DRUGS (2)
  1. BENZODIAZEPINE [Concomitant]
  2. ABILIFY [Suspect]
     Indication: PSYCHOTIC DISORDER

REACTIONS (1)
  - DEATH [None]
